FAERS Safety Report 5692961-8 (Version None)
Quarter: 2008Q2

REPORT INFORMATION
  Report Type: 
  Country: None (occurrence: None)
  Receive Date: 20080402
  Receipt Date: 20080402
  Transmission Date: 20081010
  Serious: Yes (Hospitalization)
  Sender: FDA-Public Use
  Company Number: None

PATIENT
  Sex: Male
  Weight: 63.5036 kg

DRUGS (2)
  1. DURAGESIC-75 [Suspect]
     Indication: ARTHROPATHY
     Dosage: 1 PATCH EVERY 48HRS 75MCG FROM 2/26/08 - PRESENT
     Dates: start: 20071201
  2. DURAGESIC-75 [Suspect]
     Indication: ARTHROPATHY
     Dosage: 1 PATCH EVERY 48HRS 75MCG FROM 2/26/08 - PRESENT
     Dates: start: 20080226

REACTIONS (5)
  - CHEST DISCOMFORT [None]
  - DYSPNOEA [None]
  - HYPERHIDROSIS [None]
  - HYPOAESTHESIA [None]
  - PARAESTHESIA [None]
